FAERS Safety Report 21669658 (Version 2)
Quarter: 2022Q4

REPORT INFORMATION
  Report Type: Report from Study
  Country: ES (occurrence: ES)
  Receive Date: 20221201
  Receipt Date: 20221227
  Transmission Date: 20230113
  Serious: Yes (Hospitalization)
  Sender: FDA-Public Use
  Company Number: ES-JNJFOC-20221151562

PATIENT
  Age: 68 Year
  Sex: Female
  Weight: 55 kg

DRUGS (25)
  1. CILTACABTAGENE AUTOLEUCEL [Suspect]
     Active Substance: CILTACABTAGENE AUTOLEUCEL
     Indication: Plasma cell myeloma
     Route: 042
     Dates: start: 20221102, end: 20221102
  2. CYCLOPHOSPHAMIDE [Concomitant]
     Active Substance: CYCLOPHOSPHAMIDE
     Indication: Plasma cell myeloma
     Route: 042
     Dates: start: 20220226, end: 20220228
  3. FLUDARABINE [Concomitant]
     Active Substance: FLUDARABINE PHOSPHATE
     Indication: Plasma cell myeloma
     Route: 042
     Dates: start: 20220226, end: 20220228
  4. OMEPRAZOLE [Concomitant]
     Active Substance: OMEPRAZOLE
     Indication: Prophylaxis
     Route: 048
     Dates: start: 20220225
  5. ACYCLOVIR [Concomitant]
     Active Substance: ACYCLOVIR
     Indication: Prophylaxis
     Route: 048
     Dates: start: 20220225
  6. METAMIZOLE [Concomitant]
     Active Substance: METAMIZOLE
     Indication: Bone pain
     Route: 048
     Dates: start: 20220228
  7. METAMIZOLE [Concomitant]
     Active Substance: METAMIZOLE
     Indication: Arthralgia
     Route: 042
     Dates: start: 20221113, end: 20221114
  8. METAMIZOLE [Concomitant]
     Active Substance: METAMIZOLE
     Indication: Pain in extremity
  9. SULFAMETHOXAZOLE\TRIMETHOPRIM [Concomitant]
     Active Substance: SULFAMETHOXAZOLE\TRIMETHOPRIM
     Indication: Prophylaxis
     Dosage: 800/160
     Route: 048
     Dates: start: 20220318
  10. LORAZEPAM [Concomitant]
     Active Substance: LORAZEPAM
     Indication: Prophylaxis
     Route: 048
     Dates: start: 20220325
  11. FENTANYL [Concomitant]
     Active Substance: FENTANYL
     Indication: Bone pain
     Route: 062
     Dates: start: 20220325
  12. FENTANYL [Concomitant]
     Active Substance: FENTANYL
     Indication: Arthralgia
     Route: 060
     Dates: start: 20221114
  13. FENTANYL [Concomitant]
     Active Substance: FENTANYL
     Indication: Pain in extremity
     Route: 062
     Dates: start: 20220325
  14. PREGABALIN [Concomitant]
     Active Substance: PREGABALIN
     Indication: Bone pain
     Route: 048
     Dates: start: 20220328
  15. PREGABALIN [Concomitant]
     Active Substance: PREGABALIN
     Indication: Peripheral sensory neuropathy
  16. ELIQUIS [Concomitant]
     Active Substance: APIXABAN
     Indication: Prophylaxis
     Route: 048
     Dates: start: 20220809
  17. MEROPENEM [Concomitant]
     Active Substance: MEROPENEM
     Indication: Prophylaxis
     Route: 042
     Dates: start: 20221109
  18. ACETAMINOPHEN [Concomitant]
     Active Substance: ACETAMINOPHEN
     Indication: Headache
     Route: 042
     Dates: start: 20221110, end: 20221213
  19. ACETAMINOPHEN [Concomitant]
     Active Substance: ACETAMINOPHEN
     Indication: Cytokine release syndrome
  20. TOCILIZUMAB [Concomitant]
     Active Substance: TOCILIZUMAB
     Indication: Cytokine release syndrome
     Route: 042
     Dates: start: 20221110, end: 20221110
  21. TOCILIZUMAB [Concomitant]
     Active Substance: TOCILIZUMAB
     Indication: Headache
     Route: 042
     Dates: start: 20221110, end: 20221110
  22. TOCILIZUMAB [Concomitant]
     Active Substance: TOCILIZUMAB
     Indication: Hypotension
     Route: 042
     Dates: start: 20221111, end: 20221111
  23. TOCILIZUMAB [Concomitant]
     Active Substance: TOCILIZUMAB
     Indication: Pyrexia
  24. TRAMADOL [Concomitant]
     Active Substance: TRAMADOL
     Indication: Bone pain
     Route: 048
  25. LEVETIRACETAM [Concomitant]
     Active Substance: LEVETIRACETAM
     Indication: Prophylaxis
     Route: 048
     Dates: start: 20221110, end: 20221115

REACTIONS (1)
  - Facial paralysis [Recovering/Resolving]

NARRATIVE: CASE EVENT DATE: 20221118
